FAERS Safety Report 8930806 (Version 1)
Quarter: 2012Q4

REPORT INFORMATION
  Report Type: 
  Country: JP (occurrence: JP)
  Receive Date: 20121128
  Receipt Date: 20121128
  Transmission Date: 20130627
  Serious: Yes (Hospitalization)
  Sender: FDA-Public Use
  Company Number: JP-PFIZER INC-2012291788

PATIENT
  Age: 40 Year
  Sex: Female

DRUGS (1)
  1. AZULFIDINE EN [Suspect]
     Indication: PSORIASIS
     Dosage: UNK
     Route: 048

REACTIONS (1)
  - Drug eruption [Unknown]
